FAERS Safety Report 15264455 (Version 1)
Quarter: 2018Q3

REPORT INFORMATION
  Report Type: Spontaneous
  Country: US (occurrence: US)
  Receive Date: 20180721
  Receipt Date: 20180721
  Transmission Date: 20181010
  Serious: Yes (Hospitalization)
  Sender: FDA-Public Use
  Company Number: None

PATIENT
  Age: 69 Year
  Sex: Male
  Weight: 115.85 kg

DRUGS (3)
  1. CLOPIDOGREL [Suspect]
     Active Substance: CLOPIDOGREL BISULFATE
     Route: 048
     Dates: start: 20140723
  2. CLOPIDOGREL [Suspect]
     Active Substance: CLOPIDOGREL BISULFATE
     Route: 048
     Dates: start: 20140723
  3. DABIGATRAN [Suspect]
     Active Substance: DABIGATRAN
     Indication: ATRIAL FIBRILLATION
     Route: 048
     Dates: start: 20171213, end: 20171227

REACTIONS (4)
  - Melaena [None]
  - Gastric haemorrhage [None]
  - Atrial fibrillation [None]
  - Atrial tachycardia [None]

NARRATIVE: CASE EVENT DATE: 20171227
